FAERS Safety Report 4601620-1 (Version None)
Quarter: 2005Q1

REPORT INFORMATION
  Report Type: 
  Country: None (occurrence: None)
  Receive Date: 20050308
  Receipt Date: 20040721
  Transmission Date: 20050727
  Serious: Yes (Hospitalization)
  Sender: FDA-Public Use
  Company Number: FR-GLAXOSMITHKLINE-B0339868A

PATIENT
  Age: 71 Year
  Sex: Male
  Weight: 72 kg

DRUGS (12)
  1. ZYLORIC [Suspect]
     Dosage: 300MG TWICE PER DAY
     Route: 048
     Dates: start: 20040616, end: 20040617
  2. ZELITREX [Suspect]
     Dosage: 500MG PER DAY
     Route: 048
     Dates: start: 20040616, end: 20040624
  3. ARACYTINE [Suspect]
     Indication: ACUTE MYELOID LEUKAEMIA
     Dosage: 180MG PER DAY
     Route: 042
     Dates: start: 20040617, end: 20040623
  4. BELUSTINE [Suspect]
     Indication: ACUTE MYELOID LEUKAEMIA
     Dosage: 360MG SINGLE DOSE
     Route: 048
     Dates: start: 20040617, end: 20040617
  5. HYDREA [Suspect]
     Indication: ACUTE MYELOID LEUKAEMIA
     Dosage: 4UNIT SINGLE DOSE
     Route: 048
     Dates: start: 20040616, end: 20040616
  6. FLECAINE [Suspect]
     Dosage: .5UNIT TWICE PER DAY
     Route: 048
     Dates: end: 20040627
  7. ZAVEDOS [Concomitant]
     Indication: ACUTE MYELOID LEUKAEMIA
     Dosage: 14MG SINGLE DOSE
     Route: 042
     Dates: start: 20040617, end: 20040621
  8. REQUIP [Concomitant]
     Indication: PARKINSON'S DISEASE
     Route: 048
     Dates: end: 20040628
  9. LASILIX [Concomitant]
     Route: 065
     Dates: start: 20040616
  10. HEPARIN [Concomitant]
     Dosage: 8000IU SINGLE DOSE
     Route: 065
     Dates: start: 20040616, end: 20040616
  11. LEXOMIL [Concomitant]
     Dosage: 2MG PER DAY
     Route: 048
     Dates: start: 20040617, end: 20040623
  12. RASBURICASE [Concomitant]
     Route: 042
     Dates: start: 20040618, end: 20040622

REACTIONS (13)
  - BILIRUBIN CONJUGATED INCREASED [None]
  - BLOOD ALKALINE PHOSPHATASE INCREASED [None]
  - BLOOD BILIRUBIN INCREASED [None]
  - BLOOD CREATININE INCREASED [None]
  - BLOOD LACTATE DEHYDROGENASE INCREASED [None]
  - BLOOD UREA INCREASED [None]
  - GAMMA-GLUTAMYLTRANSFERASE INCREASED [None]
  - HEPATITIS CHOLESTATIC [None]
  - LEUKOPENIA [None]
  - OCULAR ICTERUS [None]
  - PROTHROMBIN TIME SHORTENED [None]
  - STAPHYLOCOCCAL INFECTION [None]
  - THROMBOCYTOPENIA [None]
